FAERS Safety Report 10180358 (Version 2)
Quarter: 2014Q2

REPORT INFORMATION
  Report Type: Spontaneous
  Country: GB (occurrence: None)
  Receive Date: 20140515
  Receipt Date: 20140523
  Transmission Date: 20141212
  Serious: Yes (Hospitalization)
  Sender: FDA-Public Use
  Company Number: AUR-APL-2014-05542

PATIENT
  Age: 62 Year
  Sex: Female
  Weight: 73 kg

DRUGS (3)
  1. CITALOPRAM (CITALOPRAM) [Suspect]
     Indication: DEPRESSION
     Dosage: 20 MG, 1 IN 1 D, ORAL
     Route: 048
     Dates: start: 20140110
  2. PALEXIA SR [Suspect]
     Indication: BACK PAIN
     Dosage: 100 MG (50 MG, 2 IN 1 D), ORAL
     Route: 048
     Dates: start: 20140416
  3. DIHYDROCODEINE (DIHYDROCODEINE) [Concomitant]

REACTIONS (4)
  - Muscle twitching [None]
  - Malaise [None]
  - Serotonin syndrome [None]
  - Drug interaction [None]
